FAERS Safety Report 6583073-X (Version None)
Quarter: 2010Q1

REPORT INFORMATION
  Report Type: 
  Country: None (occurrence: None)
  Receive Date: 20100216
  Receipt Date: 20100205
  Transmission Date: 20100710
  Serious: Yes (Death)
  Sender: FDA-Public Use
  Company Number: US-AMGEN-QUU391159

PATIENT
  Sex: Female

DRUGS (2)
  1. NPLATE [Suspect]
     Indication: IDIOPATHIC THROMBOCYTOPENIC PURPURA
     Dates: start: 20081204, end: 20090416
  2. CORTICOSTEROIDS [Concomitant]
     Dates: start: 20080404

REACTIONS (1)
  - DEMENTIA ALZHEIMER'S TYPE [None]
